FAERS Safety Report 5322926-7 (Version None)
Quarter: 2007Q1

REPORT INFORMATION
  Report Type: 
  Country: None (occurrence: None)
  Receive Date: 20070222
  Receipt Date: 20061117
  Transmission Date: 20070707
  Serious: Yes (Other)
  Sender: FDA-Public Use
  Company Number: 2006138679

PATIENT
  Age: 61 Year
  Sex: Male
  Weight: 136.0791 kg

DRUGS (4)
  1. EXUBERA [Suspect]
     Indication: DIABETES MELLITUS
     Dosage: (3 MG)
     Dates: start: 20061102
  2. GLUCOPHAGE [Concomitant]
  3. AVANDIA [Concomitant]
  4. GLYNASE [Concomitant]

REACTIONS (4)
  - BLOOD GLUCOSE INCREASED [None]
  - DEVICE MALFUNCTION [None]
  - GLYCOSYLATED HAEMOGLOBIN INCREASED [None]
  - MEDICATION RESIDUE [None]
